FAERS Safety Report 19647012 (Version 2)
Quarter: 2021Q3

REPORT INFORMATION
  Report Type: Spontaneous
  Country: GB (occurrence: GB)
  Receive Date: 20210802
  Receipt Date: 20210827
  Transmission Date: 20211014
  Serious: Yes (Other)
  Sender: FDA-Public Use
  Company Number: GB-AMGEN-GBRSP2021115489

PATIENT
  Age: 36 Year
  Sex: Female
  Weight: 77.45 kg

DRUGS (2)
  1. ADALIMUMAB [Suspect]
     Active Substance: ADALIMUMAB
     Indication: CROHN^S DISEASE
  2. ADALIMUMAB [Suspect]
     Active Substance: ADALIMUMAB
     Indication: INFLAMMATORY BOWEL DISEASE
     Dosage: UNK
     Route: 058

REACTIONS (2)
  - Maternal exposure during pregnancy [Unknown]
  - Triple negative breast cancer [Unknown]

NARRATIVE: CASE EVENT DATE: 2021
